FAERS Safety Report 5623055-5 (Version None)
Quarter: 2008Q1

REPORT INFORMATION
  Report Type: 
  Country: None (occurrence: None)
  Receive Date: 20080212
  Receipt Date: 20080130
  Transmission Date: 20080703
  Serious: Yes (Life-Threatening, Hospitalization, Other)
  Sender: FDA-Public Use
  Company Number: US-AVENTIS-200610952US

PATIENT
  Age: 53 Year
  Sex: Female
  Weight: 65.9 kg

DRUGS (6)
  1. KETEK [Suspect]
     Dates: start: 20060118, end: 20060122
  2. PROTONIX [Concomitant]
     Dosage: DOSE: UNK
  3. ASPIRIN [Concomitant]
     Dosage: DOSE: UNK
  4. THIAZIDE [Concomitant]
     Dosage: DOSE: UNJK
  5. PREMPRO [Concomitant]
     Dosage: DOSE: UNK
  6. NAPROXEN [Concomitant]
     Dosage: DOSE: UNK

REACTIONS (19)
  - ACUTE HEPATIC FAILURE [None]
  - ALANINE AMINOTRANSFERASE INCREASED [None]
  - ASPARTATE AMINOTRANSFERASE INCREASED [None]
  - ASTHENIA [None]
  - AUTOIMMUNE HEPATITIS [None]
  - BILIRUBIN CONJUGATED INCREASED [None]
  - BLOOD BILIRUBIN INCREASED [None]
  - CHROMATURIA [None]
  - COAGULOPATHY [None]
  - FAECES PALE [None]
  - HEPATITIS [None]
  - INSOMNIA [None]
  - INTERNATIONAL NORMALISED RATIO INCREASED [None]
  - JAUNDICE [None]
  - MALAISE [None]
  - NAUSEA [None]
  - OCULAR ICTERUS [None]
  - SKIN DISCOLOURATION [None]
  - VOMITING [None]
